FAERS Safety Report 24404125 (Version 1)
Quarter: 2024Q4

REPORT INFORMATION
  Report Type: Spontaneous
  Country: US (occurrence: US)
  Receive Date: 20241007
  Receipt Date: 20241007
  Transmission Date: 20250115
  Serious: No
  Sender: RANBAXY
  Company Number: US-SUN PHARMACEUTICAL INDUSTRIES LTD-2024R1-462845

PATIENT
  Sex: Female

DRUGS (6)
  1. CEQUA [Suspect]
     Active Substance: CYCLOSPORINE
     Indication: Dry eye
     Dosage: UNK
     Route: 047
     Dates: start: 20240725
  2. Simivastatin [Concomitant]
     Indication: Product used for unknown indication
     Dosage: 40 MILLIGRAM, DAILY
     Route: 065
  3. ESCITALOPRAM [Concomitant]
     Active Substance: ESCITALOPRAM OXALATE
     Indication: Product used for unknown indication
     Dosage: 20 MILLIGRAM, DAILY
     Route: 065
  4. TRAZODONE [Concomitant]
     Active Substance: TRAZODONE HYDROCHLORIDE
     Indication: Product used for unknown indication
     Dosage: 100 MILLIGRAM, DAILY
     Route: 065
  5. Antarctic krill oil [Concomitant]
     Indication: Product used for unknown indication
     Dosage: 1000 MILLIGRAM, DAILY
     Route: 065
  6. NICOTINAMIDE [Concomitant]
     Active Substance: NIACINAMIDE
     Indication: Product used for unknown indication
     Dosage: 550 MILLIGRAM, DAILY
     Route: 065

REACTIONS (2)
  - Eye irritation [Unknown]
  - Therapy cessation [Unknown]
